FAERS Safety Report 19694842 (Version 1)
Quarter: 2021Q3

REPORT INFORMATION
  Report Type: Spontaneous
  Country: DE (occurrence: DE)
  Receive Date: 20210813
  Receipt Date: 20210813
  Transmission Date: 20211014
  Serious: Yes (Hospitalization)
  Sender: FDA-Public Use
  Company Number: DE-TEVA-2021-DE-1940775

PATIENT
  Age: 82 Year
  Sex: Male

DRUGS (7)
  1. TRAMADOL. [Suspect]
     Active Substance: TRAMADOL
     Dosage: 200 MILLIGRAM DAILY; 100 MG, 1?1?0?0
     Route: 048
  2. BISOPROLOL [Concomitant]
     Active Substance: BISOPROLOL
     Dosage: 2.5 MILLIGRAM DAILY; 1?0?0?0
     Route: 048
  3. PHENPROCOUMON [Concomitant]
     Active Substance: PHENPROCOUMON
     Dosage: 3 MG, ACCORDING TO INR
     Route: 048
  4. LEVOTHYROXIN?NATRIUM [Concomitant]
     Active Substance: LEVOTHYROXINE SODIUM
     Dosage: 100 MICROGRAM DAILY; 100 UG, 1?0?0?0
     Route: 048
  5. TAMSULOSIN [Concomitant]
     Active Substance: TAMSULOSIN
     Dosage: .4 MILLIGRAM DAILY; 0.4 MG, 1?0?0?0
     Route: 048
  6. TELMISARTAN. [Concomitant]
     Active Substance: TELMISARTAN
     Dosage: 80 MILLIGRAM DAILY; 80 MG, 1?0?0?0
     Route: 048
  7. ATORVASTATIN [Concomitant]
     Active Substance: ATORVASTATIN
     Dosage: 20 MILLIGRAM DAILY; 0?0?1?0
     Route: 048

REACTIONS (3)
  - Hypertension [Unknown]
  - Musculoskeletal pain [Unknown]
  - Dyspnoea [Unknown]
